FAERS Safety Report 6180906-6 (Version None)
Quarter: 2009Q2

REPORT INFORMATION
  Report Type: 
  Country: None (occurrence: None)
  Receive Date: 20090504
  Receipt Date: 20090504
  Transmission Date: 20091009
  Serious: Yes (Hospitalization)
  Sender: FDA-Public Use
  Company Number: None

PATIENT
  Age: 46 Year
  Sex: Female
  Weight: 72.5755 kg

DRUGS (1)
  1. RECLAST [Suspect]
     Indication: OSTEOPOROSIS
     Dosage: 5MG/100ML YEARLY IV DRIP
     Route: 041
     Dates: start: 20090403, end: 20090403

REACTIONS (12)
  - APHONIA [None]
  - ARTHRALGIA [None]
  - BONE PAIN [None]
  - HYPOAESTHESIA FACIAL [None]
  - MALAISE [None]
  - NASAL OEDEMA [None]
  - OEDEMA MOUTH [None]
  - OEDEMA PERIPHERAL [None]
  - OROPHARYNGEAL PAIN [None]
  - PYREXIA [None]
  - RASH GENERALISED [None]
  - URTICARIA [None]
